FAERS Safety Report 13125379 (Version 13)
Quarter: 2017Q3

REPORT INFORMATION
  Report Type: Spontaneous
  Country: US (occurrence: US)
  Receive Date: 20170118
  Receipt Date: 20170821
  Transmission Date: 20171127
  Serious: No
  Sender: FDA-Public Use
  Company Number: US-PFIZER INC-2017018717

PATIENT
  Age: 36 Year
  Sex: Male
  Weight: 74 kg

DRUGS (7)
  1. SUTENT [Suspect]
     Active Substance: SUNITINIB MALATE
     Dosage: 37.5 MG, CYCLIC(3 WEEKS ON/2 WEEKS OFF)
     Dates: start: 20170601
  2. SUTENT [Suspect]
     Active Substance: SUNITINIB MALATE
     Dosage: 37.5 MG, CYCLIC [28 DAYS ON/14 DAYS OFF]
     Dates: start: 20170301, end: 20170327
  3. SUTENT [Suspect]
     Active Substance: SUNITINIB MALATE
     Dosage: 50 MG, CYCLIC (28 DAYS ON/14 DAYS OFF)
     Route: 048
     Dates: start: 20170125, end: 20170215
  4. LISINOPRIL. [Concomitant]
     Active Substance: LISINOPRIL
     Dosage: UNK
  5. SUTENT [Suspect]
     Active Substance: SUNITINIB MALATE
     Indication: METASTATIC RENAL CELL CARCINOMA
     Dosage: 50 MG, CYCLIC (1 CAP DAILY (QD), 4 WEEKS ON, 2 WEEKS OFF)
     Route: 048
  6. SUTENT [Suspect]
     Active Substance: SUNITINIB MALATE
     Dosage: 37.5 MG, CYCLIC (28 DAYS ON/14 DAYS OFF)
     Dates: start: 20170428, end: 20170519
  7. OXYCODONE HYDROCHLORIDE. [Concomitant]
     Active Substance: OXYCODONE HYDROCHLORIDE
     Indication: PAIN
     Dosage: 15 MG, AS NEEDED [EVERY 4 HOURS (Q 4), PRN]
     Route: 048

REACTIONS (22)
  - Photosensitivity reaction [Unknown]
  - Gait disturbance [Recovering/Resolving]
  - Skin reaction [Unknown]
  - Depression [Unknown]
  - Yellow skin [Recovered/Resolved]
  - Skin discolouration [Unknown]
  - Alopecia [Unknown]
  - Blood pressure increased [Recovering/Resolving]
  - Abdominal pain [Recovered/Resolved]
  - Swelling [Unknown]
  - Decreased appetite [Recovering/Resolving]
  - Palmar-plantar erythrodysaesthesia syndrome [Not Recovered/Not Resolved]
  - Fatigue [Unknown]
  - Asthenia [Unknown]
  - Abdominal discomfort [Recovering/Resolving]
  - Poor quality sleep [Recovering/Resolving]
  - Dehydration [Recovering/Resolving]
  - Psychiatric symptom [Unknown]
  - Crying [Recovering/Resolving]
  - Diarrhoea [Not Recovered/Not Resolved]
  - Blister [Not Recovered/Not Resolved]
  - Anxiety [Recovering/Resolving]
